FAERS Safety Report 8686599 (Version 2)
Quarter: 2012Q4

REPORT INFORMATION
  Report Type: 
  Country: US (occurrence: US)
  Receive Date: 20120726
  Receipt Date: 20120924
  Transmission Date: 20130627
  Serious: No
  Sender: FDA-Public Use
  Company Number: US-009507513-1207USA008320

PATIENT
  Age: 77 Year
  Sex: Male
  Weight: 78.5 kg

DRUGS (4)
  1. ZETIA [Suspect]
     Indication: BLOOD CHOLESTEROL INCREASED
     Dosage: 10 mg, qd
     Route: 048
     Dates: start: 20120601, end: 20120702
  2. BENICAR [Concomitant]
     Indication: BLOOD PRESSURE
     Dosage: 40 mg, qd
     Route: 048
     Dates: start: 20120111
  3. AMLODIPINE [Concomitant]
     Indication: BLOOD PRESSURE
     Dosage: UNK
     Dates: start: 20120415
  4. PANTOPRAZOLE [Concomitant]
     Indication: GASTROOESOPHAGEAL REFLUX DISEASE
     Dosage: UNK
     Dates: start: 20111008

REACTIONS (1)
  - Diarrhoea [Recovered/Resolved]
